FAERS Safety Report 19184759 (Version 1)
Quarter: 2021Q2

REPORT INFORMATION
  Report Type: Spontaneous
  Country: US (occurrence: US)
  Receive Date: 20210427
  Receipt Date: 20210427
  Transmission Date: 20210717
  Serious: Yes (Hospitalization)
  Sender: FDA-Public Use
  Company Number: US-MYLANLABS-2021M1024636

PATIENT
  Age: 65 Year
  Sex: Female

DRUGS (8)
  1. VANCOMYCIN [Suspect]
     Active Substance: VANCOMYCIN
     Indication: DEVICE RELATED INFECTION
  2. VANCOMYCIN [Suspect]
     Active Substance: VANCOMYCIN
     Indication: DEVICE RELATED INFECTION
  3. GENTAMICIN. [Suspect]
     Active Substance: GENTAMICIN
     Indication: DEVICE RELATED INFECTION
  4. AMPHOTERICIN B. [Concomitant]
     Active Substance: AMPHOTERICIN B
     Indication: STAPHYLOCOCCAL INFECTION
     Dosage: UNK
     Route: 065
  5. VANCOMYCIN [Suspect]
     Active Substance: VANCOMYCIN
     Indication: STAPHYLOCOCCAL INFECTION
     Dosage: UNK
     Route: 042
  6. GENTAMICIN. [Suspect]
     Active Substance: GENTAMICIN
     Indication: STAPHYLOCOCCAL INFECTION
     Dosage: UNK
     Route: 065
  7. AMPHOTERICIN B. [Concomitant]
     Active Substance: AMPHOTERICIN B
     Indication: DEVICE RELATED INFECTION
  8. VANCOMYCIN [Suspect]
     Active Substance: VANCOMYCIN
     Indication: STAPHYLOCOCCAL INFECTION
     Dosage: UNK
     Route: 065

REACTIONS (4)
  - Antibiotic level above therapeutic [Unknown]
  - IgA nephropathy [Unknown]
  - Acute kidney injury [Unknown]
  - Proteinuria [Unknown]
